FAERS Safety Report 10058507 (Version 1)
Quarter: 2014Q2

REPORT INFORMATION
  Report Type: Spontaneous
  Country: US (occurrence: US)
  Receive Date: 20140404
  Receipt Date: 20140404
  Transmission Date: 20141212
  Serious: Yes (Hospitalization)
  Sender: FDA-Public Use
  Company Number: US-BAYER-2014-049688

PATIENT
  Age: 32 Year
  Sex: Female
  Weight: 83.9 kg

DRUGS (5)
  1. YAZ [Suspect]
  2. YASMIN [Suspect]
  3. MOTRIN [Concomitant]
     Dosage: THREE TIMES A DAY
  4. VICODIN [Concomitant]
     Indication: PAIN
     Dosage: EVERY 6 TO 8 HOURS
  5. SOLU-MEDROL [Concomitant]

REACTIONS (1)
  - Pulmonary embolism [None]
